FAERS Safety Report 10708255 (Version 1)
Quarter: 2015Q1

REPORT INFORMATION
  Report Type: Spontaneous
  Country: US (occurrence: US)
  Receive Date: 20150113
  Receipt Date: 20150113
  Transmission Date: 20150721
  Serious: Yes (Death)
  Sender: FDA-Public Use
  Company Number: US-BAYER-2015-004518

PATIENT
  Age: 56 Year
  Sex: Female

DRUGS (2)
  1. CARBON MONOXIDE [Suspect]
     Active Substance: CARBON MONOXIDE
  2. DIPHENHYDRAMINE HYDROCHLORIDE. [Suspect]
     Active Substance: DIPHENHYDRAMINE HYDROCHLORIDE

REACTIONS (1)
  - Environmental exposure [Fatal]
